FAERS Safety Report 6943309-X (Version None)
Quarter: 2010Q3

REPORT INFORMATION
  Report Type: 
  Country: None (occurrence: None)
  Receive Date: 20100823
  Receipt Date: 20100816
  Transmission Date: 20110219
  Serious: Yes (Disabling, Other)
  Sender: FDA-Public Use
  Company Number: 2010SP034483

PATIENT
  Age: 18 Year
  Sex: Female

DRUGS (3)
  1. IMPLANON [Suspect]
     Indication: CONTRACEPTION
     Dosage: 1 DF; SBDE
     Route: 059
     Dates: start: 20090518, end: 20100610
  2. NICOTINE [Concomitant]
  3. BETAMETHASONE [Concomitant]

REACTIONS (6)
  - ALOPECIA [None]
  - ALOPECIA TOTALIS [None]
  - ANXIETY [None]
  - DEPRESSION [None]
  - UNEVALUABLE EVENT [None]
  - WEIGHT DECREASED [None]
